FAERS Safety Report 7053370-2 (Version None)
Quarter: 2010Q4

REPORT INFORMATION
  Report Type: 
  Country: None (occurrence: None)
  Receive Date: 20101020
  Receipt Date: 20100813
  Transmission Date: 20110411
  Serious: No
  Sender: FDA-Public Use
  Company Number: US-MYLANLABS-2010S1014806

PATIENT
  Age: 28 Year
  Sex: Male

DRUGS (3)
  1. BUPROPION HYDROCHLORIDE [Suspect]
     Indication: DEPRESSION
     Route: 048
     Dates: start: 20100615
  2. ZYRTEC [Concomitant]
  3. FLONASE [Concomitant]
     Indication: SEASONAL ALLERGY

REACTIONS (2)
  - DEPRESSION [None]
  - DRUG INEFFECTIVE [None]
